FAERS Safety Report 8910154 (Version 2)
Quarter: 2012Q4

REPORT INFORMATION
  Report Type: 
  Country: US (occurrence: US)
  Receive Date: 20121115
  Receipt Date: 20121119
  Transmission Date: 20130627
  Serious: Yes (Hospitalization, Other)
  Sender: FDA-Public Use
  Company Number: US-009507513-1210USA009695

PATIENT
  Sex: Female

DRUGS (2)
  1. STROMECTOL [Suspect]
     Indication: INFECTION PARASITIC
     Dosage: 3 DF, Once
     Route: 048
     Dates: start: 200912, end: 200912
  2. STROMECTOL [Suspect]
     Dosage: 3 DF, Once
     Route: 048
     Dates: start: 201206

REACTIONS (4)
  - Adverse event [Unknown]
  - Drug effect incomplete [Unknown]
  - Hypersensitivity [Recovered/Resolved]
  - Drug effect incomplete [Unknown]
